FAERS Safety Report 4688607-8 (Version None)
Quarter: 2005Q2

REPORT INFORMATION
  Report Type: 
  Country: None (occurrence: None)
  Receive Date: 20050609
  Receipt Date: 20050609
  Transmission Date: 20051028
  Serious: Yes (Life-Threatening, Hospitalization)
  Sender: FDA-Public Use
  Company Number: None

PATIENT
  Age: 61 Year
  Sex: Male
  Weight: 75.4 kg

DRUGS (1)
  1. IL-2 [Suspect]
     Indication: METASTATIC MALIGNANT MELANOMA
     Dosage: 54 ML UNITS Q 8 HRS X 9
     Dates: start: 20050523, end: 20050526

REACTIONS (4)
  - DUODENITIS [None]
  - GASTRITIS [None]
  - GASTROINTESTINAL HAEMORRHAGE [None]
  - HAEMOGLOBIN DECREASED [None]
